FAERS Safety Report 7782095-0 (Version None)
Quarter: 2011Q3

REPORT INFORMATION
  Report Type: 
  Country: None (occurrence: None)
  Receive Date: 20110927
  Receipt Date: 20110914
  Transmission Date: 20111222
  Serious: Yes (Hospitalization)
  Sender: FDA-Public Use
  Company Number: US-ELI_LILLY_AND_COMPANY-US201109004466

PATIENT
  Age: 76 Year
  Sex: Female

DRUGS (1)
  1. FORTEO [Suspect]
     Indication: OSTEOPOROSIS
     Dosage: 20 UG, QD
     Route: 065
     Dates: start: 20110101, end: 20110907

REACTIONS (5)
  - SWELLING FACE [None]
  - SIALOADENITIS [None]
  - NECK MASS [None]
  - LOCAL SWELLING [None]
  - BODY TEMPERATURE INCREASED [None]
